FAERS Safety Report 17776088 (Version 5)
Quarter: 2021Q1

REPORT INFORMATION
  Report Type: Spontaneous
  Country: US (occurrence: US)
  Receive Date: 20200513
  Receipt Date: 20210106
  Transmission Date: 20210419
  Serious: No
  Sender: FDA-Public Use
  Company Number: US-PFIZER INC-2020188677

PATIENT
  Age: 62 Year
  Sex: Female

DRUGS (2)
  1. DICLOFENAC [Concomitant]
     Active Substance: DICLOFENAC
     Indication: MUSCULOSKELETAL DISORDER
     Dosage: UNK
  2. XELJANZ XR [Suspect]
     Active Substance: TOFACITINIB CITRATE
     Indication: RHEUMATOID ARTHRITIS
     Dosage: 11 MG, DAILY (TAKE XELJANZ EVERY NIGHT AT SAME TIME)
     Route: 048
     Dates: start: 20200509

REACTIONS (4)
  - Product dose omission issue [Unknown]
  - Pain in extremity [Unknown]
  - Grip strength decreased [Unknown]
  - Drug ineffective [Not Recovered/Not Resolved]
